FAERS Safety Report 11071990 (Version 4)
Quarter: 2015Q4

REPORT INFORMATION
  Report Type: Spontaneous
  Country: IT (occurrence: IT)
  Receive Date: 20150428
  Receipt Date: 20151130
  Transmission Date: 20160304
  Serious: Yes (Other)
  Sender: FDA-Public Use
  Company Number: IT-PFIZER INC-2015140136

PATIENT
  Age: 72 Year
  Sex: Male
  Weight: 50 kg

DRUGS (3)
  1. VFEND [Suspect]
     Active Substance: VORICONAZOLE
     Indication: BRONCHOPULMONARY ASPERGILLOSIS
     Dosage: 400 MG, DAILY
     Route: 042
     Dates: start: 20150321, end: 20150328
  2. TACROLIMUS MYLAN [Concomitant]
     Indication: PROPHYLAXIS AGAINST TRANSPLANT REJECTION
     Dosage: 0.5 MG, UNK
     Route: 048
  3. ZYVOXID [Suspect]
     Active Substance: LINEZOLID
     Indication: LUNG ABSCESS
     Dosage: 1200 MG, DAILY
     Route: 041
     Dates: start: 20150320

REACTIONS (3)
  - Musculoskeletal pain [Recovering/Resolving]
  - Visual impairment [Recovering/Resolving]
  - Hallucination, visual [Recovering/Resolving]

NARRATIVE: CASE EVENT DATE: 20150325
